FAERS Safety Report 6755489-X (Version None)
Quarter: 2010Q2

REPORT INFORMATION
  Report Type: 
  Country: None (occurrence: None)
  Receive Date: 20100604
  Receipt Date: 20100527
  Transmission Date: 20101027
  Serious: Yes (Hospitalization)
  Sender: FDA-Public Use
  Company Number: FR-JNJFOC-20100510025

PATIENT
  Sex: Male
  Weight: 61 kg

DRUGS (3)
  1. CONCERTA [Suspect]
     Indication: ATTENTION DEFICIT/HYPERACTIVITY DISORDER
     Route: 048
  2. CONCERTA [Suspect]
     Route: 048
  3. TERCIAN [Concomitant]
     Route: 065

REACTIONS (7)
  - ANTEROGRADE AMNESIA [None]
  - ASTHENIA [None]
  - BRIEF PSYCHOTIC DISORDER WITH MARKED STRESSORS [None]
  - DECREASED APPETITE [None]
  - MUSCULAR WEAKNESS [None]
  - RESTLESSNESS [None]
  - WEIGHT DECREASED [None]
